FAERS Safety Report 7792013-7 (Version None)
Quarter: 2011Q4

REPORT INFORMATION
  Report Type: 
  Country: None (occurrence: None)
  Receive Date: 20111003
  Receipt Date: 20110929
  Transmission Date: 20120403
  Serious: Yes (Death)
  Sender: FDA-Public Use
  Company Number: PE-PFIZER INC-2011233950

PATIENT
  Age: 86 Year
  Sex: Female

DRUGS (1)
  1. XANAX XR [Suspect]
     Indication: PANIC ATTACK
     Dosage: 2 MG, 1X/DAY
     Route: 048

REACTIONS (1)
  - DEATH [None]
